FAERS Safety Report 4873757-3 (Version None)
Quarter: 2006Q1

REPORT INFORMATION
  Report Type: 
  Country: None (occurrence: None)
  Receive Date: 20060104
  Receipt Date: 20051220
  Transmission Date: 20060701
  Serious: Yes (Hospitalization)
  Sender: FDA-Public Use
  Company Number: US-2005-025783

PATIENT
  Age: 46 Year
  Sex: Female
  Weight: 77 kg

DRUGS (1)
  1. MIRENA [Suspect]
     Dosage: 20 UG/DAY CONT INTRAUTERINE
     Route: 015
     Dates: start: 20050126, end: 20051101

REACTIONS (3)
  - CERVICAL POLYP [None]
  - LEIOMYOMA [None]
  - METAPLASIA [None]
